FAERS Safety Report 4668461-0 (Version None)
Quarter: 2005Q2

REPORT INFORMATION
  Report Type: 
  Country: None (occurrence: None)
  Receive Date: 20050519
  Receipt Date: 20050511
  Transmission Date: 20051028
  Serious: Yes (Death, Hospitalization)
  Sender: FDA-Public Use
  Company Number: 200416160BCC

PATIENT
  Age: 66 Year
  Sex: Male
  Weight: 95.2554 kg

DRUGS (18)
  1. ALEVE [Suspect]
     Indication: HEADACHE
     Dosage: 220 MG, ONCE, ORAL
     Route: 048
     Dates: start: 20000403
  2. ALEVE [Suspect]
     Indication: SINUS HEADACHE
     Dosage: 220 MG, ONCE, ORAL
     Route: 048
     Dates: start: 20000403
  3. DISALCID [Concomitant]
  4. ENBREL [Concomitant]
  5. PREDNISONE [Concomitant]
  6. PROPOXYPHENE NAPSYLATE W/ ACETAMINOPHEN [Concomitant]
  7. METOPROLOL SUCCINATE [Concomitant]
  8. MEDICATION FOR ARTHRITIS [Concomitant]
  9. SALICYLATE [Concomitant]
  10. FOLIC ACID [Concomitant]
  11. ASPIRIN [Concomitant]
  12. LOVASTATIN [Concomitant]
  13. LOTENSIN [Concomitant]
  14. PRILOSEC [Concomitant]
  15. CALCIUMC [Concomitant]
  16. VITAMIN D [Concomitant]
  17. IRON [Concomitant]
  18. HYDROCHLOROTHIAZIDE [Concomitant]

REACTIONS (9)
  - BRAIN DAMAGE [None]
  - CONVULSION [None]
  - DYSPNOEA [None]
  - FATIGUE [None]
  - FEELING ABNORMAL [None]
  - HEADACHE [None]
  - LOSS OF CONSCIOUSNESS [None]
  - MYOCARDIAL INFARCTION [None]
  - OXYGEN CONSUMPTION DECREASED [None]
